FAERS Safety Report 20199298 (Version 1)
Quarter: 2021Q4

REPORT INFORMATION
  Report Type: Spontaneous
  Country: US (occurrence: None)
  Receive Date: 20211216
  Receipt Date: 20211216
  Transmission Date: 20220303
  Serious: Yes (Life-Threatening, Hospitalization, Disabling)
  Sender: FDA-Public Use
  Company Number: None

PATIENT
  Age: 81 Year
  Sex: Female
  Weight: 57.15 kg

DRUGS (2)
  1. FORTEO [Suspect]
     Active Substance: TERIPARATIDE
     Indication: Osteoporosis
     Dates: start: 20211117, end: 20211209
  2. FORTEO [Concomitant]
     Active Substance: TERIPARATIDE

REACTIONS (2)
  - Hypertension [None]
  - Haemorrhagic stroke [None]

NARRATIVE: CASE EVENT DATE: 20211209
